FAERS Safety Report 11934525 (Version 1)
Quarter: 2016Q1

REPORT INFORMATION
  Report Type: Spontaneous
  Country: US (occurrence: US)
  Receive Date: 20160121
  Receipt Date: 20160121
  Transmission Date: 20160526
  Serious: No
  Sender: FDA-Public Use
  Company Number: US-SHIRE-US201600476

PATIENT
  Age: 73 Year
  Sex: Male
  Weight: 74.83 kg

DRUGS (1)
  1. VYVANSE [Suspect]
     Active Substance: LISDEXAMFETAMINE DIMESYLATE
     Indication: DISTURBANCE IN ATTENTION
     Dosage: 20 MG, 1X/DAY:QD
     Route: 048
     Dates: end: 20160110

REACTIONS (5)
  - Drug dose omission [Not Recovered/Not Resolved]
  - Malaise [Not Recovered/Not Resolved]
  - Agitation [Unknown]
  - Feeling abnormal [Not Recovered/Not Resolved]
  - Negativism [Unknown]

NARRATIVE: CASE EVENT DATE: 20160110
